FAERS Safety Report 4653177-7 (Version None)
Quarter: 2005Q2

REPORT INFORMATION
  Report Type: 
  Country: None (occurrence: None)
  Receive Date: 20050503
  Receipt Date: 20050421
  Transmission Date: 20051028
  Serious: Yes (Other)
  Sender: FDA-Public Use
  Company Number: 2005063365

PATIENT
  Age: 80 Year
  Sex: Female
  Weight: 70.3075 kg

DRUGS (7)
  1. LIPITOR [Suspect]
     Indication: ILL-DEFINED DISORDER
     Dosage: 10 MG (10 MG, 1 IN 1 D), ORAL
     Route: 048
     Dates: start: 20040101
  2. ARICEPT [Suspect]
     Indication: DEMENTIA
     Dosage: 5 MG, UNKNOWN), ORAL
     Route: 048
     Dates: start: 20050101
  3. ROSUVASTATIN (ROSUVASTATIN) [Suspect]
     Indication: ILL-DEFINED DISORDER
     Dates: start: 20040101
  4. TRIAMCINOLONE HEXACETONIDE (TRIAMCINOLONE HEXACETONIDE) [Suspect]
     Indication: OSTEOARTHRITIS
     Dates: start: 20050101, end: 20050101
  5. LEVOTHYROXINE SODIUM [Concomitant]
  6. MULTIVITAMINS (ASCORBIC ACID, ERGOCALCIFEROL, FOLIC ACID, NICOTINAMIDE [Concomitant]
  7. ACETYLSALICYLIC ACID (ACETYLSALICYCLIC ACID) [Concomitant]

REACTIONS (8)
  - ACUTE PSYCHOSIS [None]
  - CHEST PAIN [None]
  - DEMENTIA [None]
  - EOSINOPHIL COUNT DECREASED [None]
  - EXERCISE ELECTROCARDIOGRAM ABNORMAL [None]
  - FALSE POSITIVE LABORATORY RESULT [None]
  - HALLUCINATION [None]
  - LIPIDS INCREASED [None]
